FAERS Safety Report 5979109-7 (Version None)
Quarter: 2008Q4

REPORT INFORMATION
  Report Type: 
  Country: None (occurrence: None)
  Receive Date: 20081204
  Receipt Date: 20080725
  Transmission Date: 20090506
  Serious: No
  Sender: FDA-Public Use
  Company Number: US-ABBOTT-08P-163-0465642-00

PATIENT
  Sex: Female
  Weight: 70.824 kg

DRUGS (8)
  1. TRICOR [Suspect]
     Indication: BLOOD CHOLESTEROL INCREASED
     Dosage: DAILY
     Route: 048
     Dates: start: 20080601, end: 20080601
  2. TRICOR [Suspect]
     Indication: BLOOD TRIGLYCERIDES INCREASED
  3. LISINOPRIL [Concomitant]
     Indication: BLOOD PRESSURE
     Route: 048
     Dates: start: 19980101
  4. THYROID TAB [Concomitant]
     Indication: THYROID DISORDER
     Route: 048
     Dates: start: 20071101
  5. LEXAPRO [Concomitant]
     Indication: THYROID DISORDER
     Route: 048
     Dates: start: 20071101
  6. VITAMIN E [Concomitant]
     Indication: DRUG USE FOR UNKNOWN INDICATION
     Route: 048
  7. VITAMIN B [Concomitant]
     Indication: DRUG USE FOR UNKNOWN INDICATION
     Route: 048
  8. BI-EST [Concomitant]
     Indication: OESTROGEN REPLACEMENT THERAPY
     Route: 061
     Dates: start: 20060101

REACTIONS (3)
  - CHEST PAIN [None]
  - FATIGUE [None]
  - PAIN IN EXTREMITY [None]
